FAERS Safety Report 8335856-3 (Version None)
Quarter: 2012Q2

REPORT INFORMATION
  Report Type: 
  Country: None (occurrence: None)
  Receive Date: 20120504
  Receipt Date: 20120501
  Transmission Date: 20120825
  Serious: No
  Sender: FDA-Public Use
  Company Number: US-PFIZER INC-2012093328

PATIENT
  Sex: Female
  Weight: 45.351 kg

DRUGS (5)
  1. VITAMIN D [Concomitant]
     Dosage: UNK
  2. TRAMADOL [Concomitant]
     Dosage: UNK
  3. TRAZODONE [Concomitant]
     Dosage: UNK
  4. SUTENT [Suspect]
     Indication: METASTATIC RENAL CELL CARCINOMA
     Dosage: 50 MG, 1X/DAY ONE CAPSULE DAILY CYCLE 4 WEEKS ON AND 2 OFF
     Dates: start: 20120329
  5. CALCIUM [Concomitant]
     Dosage: UNK

REACTIONS (4)
  - DYSGEUSIA [None]
  - ORAL PAIN [None]
  - FATIGUE [None]
  - PALMAR-PLANTAR ERYTHRODYSAESTHESIA SYNDROME [None]
